FAERS Safety Report 21053367 (Version 1)
Quarter: 2022Q3

REPORT INFORMATION
  Report Type: Spontaneous
  Country: FR (occurrence: FR)
  Receive Date: 20220707
  Receipt Date: 20220707
  Transmission Date: 20221026
  Serious: Yes (Hospitalization)
  Sender: FDA-Public Use
  Company Number: None

PATIENT
  Age: 76 Year
  Sex: Female
  Weight: 109 kg

DRUGS (11)
  1. FUROSEMIDE [Interacting]
     Active Substance: FUROSEMIDE
     Indication: Hypertension
     Dosage: UNIT DOSE : 80 MG , FREQUENCY TIME : 1 DAYS , DURATION : 1 DAYS
     Route: 048
     Dates: end: 20220527
  2. SPIRONOLACTONE [Interacting]
     Active Substance: SPIRONOLACTONE
     Indication: Hypertension
     Dosage: UNIT DOSE : 25 MG , FREQUENCY TIME : 1 DAYS  , DURATION : 1 DAYS
     Route: 048
     Dates: end: 20220527
  3. MOVIPREP [Interacting]
     Active Substance: ASCORBIC ACID\POLYETHYLENE GLYCOL 3350\POTASSIUM CHLORIDE\SODIUM ASCORBATE\SODIUM CHLORIDE\SODIUM SU
     Indication: Colonic lavage
     Dosage: POWDER FOR ORAL SOLUTION IN SACHET , UNIT DOSE : 2 LITRES , FREQUENCY TIME : 1 TOTAL , DURATION : 1
     Route: 048
     Dates: start: 20220524, end: 20220525
  4. ALPRAZOLAM [Concomitant]
     Active Substance: ALPRAZOLAM
     Indication: Product used for unknown indication
     Dosage: UNIT DOSE : 0.13 MG , FREQUENCY TIME : 1 DAYS , THERAPY START DATE : ASKU
     Route: 048
     Dates: end: 20220527
  5. TOUJEO [Concomitant]
     Active Substance: INSULIN GLARGINE
     Indication: Product used for unknown indication
     Dosage: 300 UNITS/ML, UNIT DOSE IU , FREQUENCY TIME : 1 DAYS , THERAPY START DATE : ASKU
     Route: 058
  6. ESOMEPRAZOLE [Concomitant]
     Active Substance: ESOMEPRAZOLE
     Indication: Product used for unknown indication
     Dosage: UNIT DOSE : 20 MG , FREQUENCY TIME : 1 DAYS , DURATION : 2 DAYS
     Route: 048
     Dates: start: 20220525, end: 20220527
  7. ATORVASTATIN [Concomitant]
     Active Substance: ATORVASTATIN
     Indication: Product used for unknown indication
     Dosage: UNIT DOSE : 40 MG , FREQUENCY TIME : 1 DAYS THERAPY START DATE : ASKU
     Route: 048
  8. BISOPROLOL FUMARATE [Concomitant]
     Active Substance: BISOPROLOL FUMARATE
     Indication: Product used for unknown indication
     Dosage: BISOPROLOL (FUMARATE DE) ,THERAPY START DATE : ASKU , UNIT DOSE : 1.25 MG , FREQUENCY TIME : 1 DAYS
     Route: 048
  9. URAPIDIL [Concomitant]
     Active Substance: URAPIDIL
     Indication: Product used for unknown indication
     Dosage: UNIT DOSE  120 MG , FREQUENCY TIME :^ 1 DAYS ,THERAPY START DATE : ASKU
     Route: 048
     Dates: end: 20220527
  10. METFORMIN HYDROCHLORIDE [Concomitant]
     Active Substance: METFORMIN HYDROCHLORIDE
     Indication: Product used for unknown indication
     Dosage: UNIT DOSE : 2 GRAM , FREQUENCY TIME : 1 DAYS  , THERAPY START DATE : ASKU
     Route: 048
     Dates: end: 20220527
  11. KARDEGIC [Concomitant]
     Active Substance: ASPIRIN DL-LYSINE
     Indication: Product used for unknown indication
     Dosage: POWDER FOR ORAL SOLUTION IN SACHET-DOSE , UNIT DOSE : 1 DF ,FREQUENCY TIME : 1 DAYS . FORM STRENGTH
     Route: 048

REACTIONS (2)
  - Drug interaction [Recovered/Resolved]
  - Acute kidney injury [Recovered/Resolved]

NARRATIVE: CASE EVENT DATE: 20220527
